FAERS Safety Report 17657758 (Version 4)
Quarter: 2022Q1

REPORT INFORMATION
  Report Type: Other
  Country: CA (occurrence: CA)
  Receive Date: 20200411
  Receipt Date: 20220214
  Transmission Date: 20220424
  Serious: Yes (Hospitalization)
  Sender: FDA-Public Use
  Company Number: CA-002147023-PHHY2018CA036674

PATIENT
  Age: 16 Year
  Sex: Female

DRUGS (12)
  1. XOLAIR [Suspect]
     Active Substance: OMALIZUMAB
     Indication: Asthma
     Route: 058
     Dates: start: 20180626, end: 20190207
  2. XOLAIR [Suspect]
     Active Substance: OMALIZUMAB
     Route: 058
     Dates: start: 20180725
  3. XOLAIR [Suspect]
     Active Substance: OMALIZUMAB
     Route: 058
     Dates: start: 20190207, end: 20190207
  4. XOLAIR [Suspect]
     Active Substance: OMALIZUMAB
     Route: 058
     Dates: start: 20190925
  5. XOLAIR [Suspect]
     Active Substance: OMALIZUMAB
     Route: 058
     Dates: start: 20191023
  6. XOLAIR [Suspect]
     Active Substance: OMALIZUMAB
     Route: 058
     Dates: start: 20191119
  7. XOLAIR [Suspect]
     Active Substance: OMALIZUMAB
     Route: 058
     Dates: start: 20191223
  8. CLARITIN [Concomitant]
     Active Substance: LORATADINE
     Indication: Urticaria
     Dosage: 1 DF, QD
     Route: 048
     Dates: start: 2015
  9. CORTISONE [Concomitant]
     Active Substance: CORTISONE
     Indication: Urticaria
     Dosage: 1 DF, PRN
     Route: 061
  10. SYMBICORT [Concomitant]
     Active Substance: BUDESONIDE\FORMOTEROL FUMARATE DIHYDRATE
     Indication: Asthma
     Dosage: 2 DF, (200 UG, BUDESONIDE, 6 UG FORMOTEROL FUMARATE)BID
     Route: 055
     Dates: start: 2016
  11. BRICANYL [Concomitant]
     Active Substance: TERBUTALINE SULFATE
     Indication: Asthma
     Dosage: 1 DF, PRN
     Route: 055
     Dates: start: 2016
  12. SINGULAIR [Concomitant]
     Active Substance: MONTELUKAST SODIUM
     Indication: Asthma
     Dosage: 1 DF, QD
     Route: 048
     Dates: start: 2015

REACTIONS (12)
  - Abdominal pain [Unknown]
  - Insomnia [Unknown]
  - Fatigue [Unknown]
  - Oropharyngeal pain [Recovering/Resolving]
  - Nasal congestion [Recovering/Resolving]
  - Forced expiratory volume decreased [Unknown]
  - Blood pressure decreased [Unknown]
  - Respiratory rate decreased [Unknown]
  - Fatigue [Unknown]
  - Injection site pain [Recovering/Resolving]
  - Asthma [Unknown]
  - Dyspnoea [Unknown]

NARRATIVE: CASE EVENT DATE: 20180626
